FAERS Safety Report 8900065 (Version 1)
Quarter: 2012Q4

REPORT INFORMATION
  Report Type: Report from Study
  Country: CA (occurrence: CA)
  Receive Date: 20121109
  Receipt Date: 20121109
  Transmission Date: 20130627
  Serious: Yes (Other)
  Sender: FDA-Public Use
  Company Number: CA-ABBOTT-12P-028-0980610-00

PATIENT
  Sex: Female
  Weight: 69 kg

DRUGS (2)
  1. HUMIRA [Suspect]
     Indication: CROHN^S DISEASE
     Dosage: Latest dose: Oct 2012
     Route: 058
     Dates: start: 20120613
  2. HUMIRA [Suspect]
     Indication: FISTULA

REACTIONS (4)
  - Rash pustular [Not Recovered/Not Resolved]
  - Abscess [Not Recovered/Not Resolved]
  - Abscess [Recovered/Resolved]
  - Fistula discharge [Not Recovered/Not Resolved]
